FAERS Safety Report 5907895-0 (Version None)
Quarter: 2008Q4

REPORT INFORMATION
  Report Type: 
  Country: None (occurrence: None)
  Receive Date: 20081003
  Receipt Date: 20080922
  Transmission Date: 20090506
  Serious: Yes (Other)
  Sender: FDA-Public Use
  Company Number: GB-PFIZER INC-2008062873

PATIENT
  Age: 21 Year
  Sex: Female

DRUGS (7)
  1. GABAPENTIN [Suspect]
     Indication: PAIN
  2. DIAZEPAM [Suspect]
     Indication: PAIN
  3. AMITRIPTYLINE HYDROCHLORIDE [Suspect]
     Indication: PAIN
  4. ACETAMINOPHEN [Suspect]
     Indication: PAIN
  5. FENTANYL [Suspect]
     Indication: PAIN
     Route: 062
  6. MORPHINE [Suspect]
     Indication: PAIN
  7. OXYCODONE HCL [Suspect]
     Indication: PAIN

REACTIONS (2)
  - DRUG INEFFECTIVE [None]
  - SEDATION [None]
